FAERS Safety Report 13554463 (Version 1)
Quarter: 2017Q2

REPORT INFORMATION
  Report Type: Spontaneous
  Country: US (occurrence: US)
  Receive Date: 20170517
  Receipt Date: 20170517
  Transmission Date: 20170830
  Serious: Yes (Hospitalization)
  Sender: FDA-Public Use
  Company Number: None

PATIENT
  Age: 28 Year
  Sex: Male
  Weight: 71.22 kg

DRUGS (3)
  1. RIFAPENTINE 150MG [Suspect]
     Active Substance: RIFAPENTINE
     Indication: LATENT TUBERCULOSIS
     Route: 048
     Dates: start: 20170201, end: 20170322
  2. ISONIAZID 300MG [Suspect]
     Active Substance: ISONIAZID
     Indication: LATENT TUBERCULOSIS
     Route: 048
     Dates: start: 20170201, end: 20170322
  3. VITAMIN B6 [Concomitant]
     Active Substance: PYRIDOXINE HYDROCHLORIDE

REACTIONS (12)
  - Dizziness [None]
  - Vomiting [None]
  - Ocular hyperaemia [None]
  - Chills [None]
  - Blood pressure diastolic decreased [None]
  - Dyspnoea [None]
  - Oxygen saturation decreased [None]
  - Foreign body [None]
  - Heart rate increased [None]
  - Malaise [None]
  - Pyrexia [None]
  - Pallor [None]

NARRATIVE: CASE EVENT DATE: 20170322
